FAERS Safety Report 22139659 (Version 1)
Quarter: 2023Q1

REPORT INFORMATION
  Report Type: Spontaneous
  Country: DE (occurrence: DE)
  Receive Date: 20230327
  Receipt Date: 20230327
  Transmission Date: 20230417
  Serious: Yes (Life-Threatening, Hospitalization, Other)
  Sender: FDA-Public Use
  Company Number: DE-DCGMA-23200512

PATIENT
  Sex: Male
  Weight: 80 kg

DRUGS (2)
  1. JARDIANCE [Suspect]
     Active Substance: EMPAGLIFLOZIN
     Indication: Type 2 diabetes mellitus
     Route: 048
  2. METFORMIN [Suspect]
     Active Substance: METFORMIN HYDROCHLORIDE
     Indication: Type 2 diabetes mellitus
     Dosage: 50/1000 MG
     Route: 048

REACTIONS (3)
  - Diabetic ketoacidosis [Not Recovered/Not Resolved]
  - Lactic acidosis [Not Recovered/Not Resolved]
  - Hyperlactacidaemia [Not Recovered/Not Resolved]
